FAERS Safety Report 12454436 (Version 2)
Quarter: 2016Q3

REPORT INFORMATION
  Report Type: Spontaneous
  Country: FR (occurrence: FR)
  Receive Date: 20160610
  Receipt Date: 20160905
  Transmission Date: 20161109
  Serious: Yes (Life-Threatening)
  Sender: FDA-Public Use
  Company Number: FR-ROCHE-1773118

PATIENT
  Sex: Female
  Weight: 44 kg

DRUGS (3)
  1. MABTHERA [Suspect]
     Active Substance: RITUXIMAB
     Indication: RHEUMATOID ARTHRITIS
     Dosage: LAST CYCLE OF MABTHERA 1 G WAS IN OCT/2015.
     Route: 042
     Dates: start: 20090902, end: 20151007
  2. ARAVA [Suspect]
     Active Substance: LEFLUNOMIDE
     Indication: RHEUMATOID ARTHRITIS
     Route: 048
     Dates: start: 2006, end: 201601
  3. MEDROL [Suspect]
     Active Substance: METHYLPREDNISOLONE
     Indication: RHEUMATOID ARTHRITIS
     Route: 048
     Dates: start: 1985

REACTIONS (4)
  - Pneumocystis jirovecii pneumonia [Recovered/Resolved with Sequelae]
  - Cytomegalovirus infection [Recovered/Resolved with Sequelae]
  - Hypogammaglobulinaemia [Not Recovered/Not Resolved]
  - Respiratory distress [Recovered/Resolved with Sequelae]

NARRATIVE: CASE EVENT DATE: 20160124
